FAERS Safety Report 6068872-5 (Version None)
Quarter: 2009Q1

REPORT INFORMATION
  Report Type: 
  Country: None (occurrence: None)
  Receive Date: 20090206
  Receipt Date: 20090204
  Transmission Date: 20090719
  Serious: Yes (Death, Other)
  Sender: FDA-Public Use
  Company Number: GB-WYE-G03000109

PATIENT
  Sex: Male

DRUGS (23)
  1. GEMTUZUMAB OZOGAMICIN [Suspect]
     Dosage: 5.6 MG GIVEN DAY 4
     Dates: start: 20081223, end: 20081231
  2. ARA-C [Suspect]
     Dosage: 190 MG X2 GIVEN DAY 1-8, X1 DAY 9
     Dates: start: 20081223, end: 20081231
  3. PHENOXYMETHYL PENICILLIN [Concomitant]
     Route: 048
     Dates: start: 20080101, end: 20081231
  4. DIHYDROCODEINE BITARTRATE INJ [Concomitant]
     Route: 048
     Dates: start: 20080520, end: 20081231
  5. ACETAMINOPHEN [Concomitant]
     Route: 048
     Dates: start: 20080509, end: 20081231
  6. BUPRENORPHINE HCL [Concomitant]
     Dosage: 10 MG
     Route: 061
     Dates: start: 20080520, end: 20081231
  7. ALLOPURINOL [Concomitant]
     Route: 048
     Dates: start: 20080520, end: 20081231
  8. TAZOCIN [Concomitant]
     Route: 042
     Dates: start: 20081219, end: 20081224
  9. TAZOCIN [Concomitant]
     Route: 042
     Dates: start: 20081226, end: 20081231
  10. GENTAMICIN [Concomitant]
     Dosage: 480 MG
     Route: 042
     Dates: start: 20081219, end: 20081222
  11. GENTAMICIN [Concomitant]
     Dosage: 480 MG
     Route: 042
     Dates: start: 20081226, end: 20081227
  12. ACICLOVIR [Concomitant]
     Route: 048
     Dates: start: 20081223, end: 20081231
  13. ITRACONAZOLE [Concomitant]
     Dosage: 200 MG
     Route: 042
     Dates: start: 20081223, end: 20081223
  14. ITRACONAZOLE [Concomitant]
     Dosage: 190 MG
     Route: 048
     Dates: start: 20081223, end: 20081224
  15. ONDANSETRON HYDROCHLORIDE [Concomitant]
     Dosage: 8 MG IV/PO
     Dates: start: 20081223, end: 20081231
  16. AMBISOME [Concomitant]
     Dosage: 50 MG
     Route: 042
     Dates: start: 20081223, end: 20081230
  17. CHLORHEXIDINE GLUCONATE [Concomitant]
     Dosage: 10 ML
     Route: 048
     Dates: start: 20081223, end: 20081231
  18. VANCOMYCIN [Concomitant]
     Dosage: 1 G
     Route: 042
     Dates: start: 20081228, end: 20081231
  19. CHLORAMPHENICOL [Concomitant]
     Dosage: 0.5% EYE DROPS
     Route: 031
     Dates: start: 20081229, end: 20081231
  20. METOCLOPRAMIDE [Concomitant]
     Dosage: 10 MG PO/IV
     Dates: start: 20081228, end: 20081228
  21. ZOPICLONE [Concomitant]
     Dosage: 3.75 MG
     Route: 048
     Dates: start: 20081228, end: 20081228
  22. CHLORPHENTERMINE 65MG TAB [Concomitant]
     Dosage: 10 MG
     Route: 042
     Dates: start: 20081228, end: 20081228
  23. DAUNORUBICIN HCL [Suspect]
     Dosage: 95 MG GIVEN DAY 1, 3, 5
     Dates: start: 20081223, end: 20081231

REACTIONS (2)
  - FALL [None]
  - SUBDURAL HAEMATOMA [None]
